FAERS Safety Report 5806981-3 (Version None)
Quarter: 2008Q3

REPORT INFORMATION
  Report Type: 
  Country: None (occurrence: None)
  Receive Date: 20080711
  Receipt Date: 20080710
  Transmission Date: 20090109
  Serious: Yes (Disabling)
  Sender: FDA-Public Use
  Company Number: AU-BAYER-200821669GPV

PATIENT
  Age: 48 Year
  Sex: Female
  Weight: 70 kg

DRUGS (3)
  1. MIRENA [Suspect]
     Indication: MENORRHAGIA
     Route: 015
     Dates: start: 20030901, end: 20080522
  2. METOPROLOL TARTRATE [Concomitant]
     Indication: ARRHYTHMIA
     Dosage: TOTAL DAILY DOSE: 15 MG
     Route: 048
  3. PARACETAMOL WITH CODEINE PHOSPHATE [Concomitant]
     Indication: ARTHRALGIA
     Route: 065

REACTIONS (6)
  - ABDOMINAL DISTENSION [None]
  - ALOPECIA [None]
  - BREAST PAIN [None]
  - HYPERTRICHOSIS [None]
  - OVARIAN CYST [None]
  - WEIGHT INCREASED [None]
